FAERS Safety Report 24908999 (Version 1)
Quarter: 2025Q1

REPORT INFORMATION
  Report Type: Spontaneous
  Country: CN (occurrence: CN)
  Receive Date: 20250131
  Receipt Date: 20250131
  Transmission Date: 20250409
  Serious: Yes (Other)
  Sender: MERCK
  Company Number: CN-009507513-2501CHN009921

PATIENT
  Age: 99 Year
  Sex: Male

DRUGS (1)
  1. CILASTATIN SODIUM\IMIPENEM [Suspect]
     Active Substance: CILASTATIN SODIUM\IMIPENEM
     Indication: Pneumonia
     Dosage: 0.5 G, Q8H
     Route: 041
     Dates: start: 20250103, end: 20250109

REACTIONS (2)
  - Gastrostomy [Unknown]
  - Dysbiosis [Recovering/Resolving]

NARRATIVE: CASE EVENT DATE: 20250101
